FAERS Safety Report 23426181 (Version 1)
Quarter: 2024Q1

REPORT INFORMATION
  Report Type: Spontaneous
  Country: JP (occurrence: JP)
  Receive Date: 20240122
  Receipt Date: 20240122
  Transmission Date: 20240410
  Serious: Yes (Hospitalization)
  Sender: FDA-Public Use
  Company Number: JP-Merck Healthcare KGaA-2024002756

PATIENT
  Age: 55 Year
  Sex: Female
  Weight: 75 kg

DRUGS (12)
  1. METGLUCO [Suspect]
     Active Substance: METFORMIN HYDROCHLORIDE
     Indication: Diabetes mellitus
     Route: 048
     Dates: start: 20230316
  2. BLONANSERIN [Suspect]
     Active Substance: BLONANSERIN
     Indication: Schizophrenia
     Route: 062
     Dates: start: 20230310, end: 20230404
  3. LEVOMEPROMAZINE [Suspect]
     Active Substance: LEVOMEPROMAZINE
     Indication: Insomnia
     Route: 048
     Dates: start: 20230314, end: 20230524
  4. LEVOMEPROMAZINE [Suspect]
     Active Substance: LEVOMEPROMAZINE
     Route: 048
     Dates: start: 20230525, end: 20230622
  5. BLONANSERIN [Suspect]
     Active Substance: BLONANSERIN
     Indication: Hallucination
     Dates: start: 20230404, end: 20230808
  6. BLONANSERIN [Suspect]
     Active Substance: BLONANSERIN
     Indication: Delusion
  7. BLONANSERIN [Suspect]
     Active Substance: BLONANSERIN
     Indication: Psychomotor hyperactivity
  8. FLUNITRAZEPAM [Concomitant]
     Active Substance: FLUNITRAZEPAM
     Indication: Insomnia
     Dosage: ONGOING
     Dates: start: 20230309
  9. LINAGLIPTIN [Concomitant]
     Active Substance: LINAGLIPTIN
     Indication: Diabetes mellitus
     Dates: start: 20230316
  10. MIANSERIN [Concomitant]
     Active Substance: MIANSERIN
     Indication: Insomnia
     Dosage: ONGOING
     Dates: start: 20230818
  11. ARIPIPRAZOLE [Concomitant]
     Active Substance: ARIPIPRAZOLE
     Indication: Depression
     Dosage: ONGOING
     Dates: start: 20230902
  12. DULOXETINE HYDROCHLORIDE [Concomitant]
     Active Substance: DULOXETINE HYDROCHLORIDE
     Indication: Depression
     Dosage: ONGOING
     Dates: start: 20230912

REACTIONS (2)
  - Depression [Recovered/Resolved]
  - Extrapyramidal disorder [Recovering/Resolving]

NARRATIVE: CASE EVENT DATE: 20230501
